FAERS Safety Report 9415457 (Version 1)
Quarter: 2013Q3

REPORT INFORMATION
  Report Type: Spontaneous
  Country: US (occurrence: US)
  Receive Date: 20130723
  Receipt Date: 20130723
  Transmission Date: 20140515
  Serious: Yes (Other)
  Sender: FDA-Public Use
  Company Number: US-RB-056356-13

PATIENT
  Age: 38 Year
  Sex: Female

DRUGS (1)
  1. SUBOXONE FILM [Suspect]
     Indication: PRODUCT USED FOR UNKNOWN INDICATION
     Dosage: SUBOXONE FILM. UNKNOWN DOSING DETAILS
     Route: 065

REACTIONS (2)
  - Intervertebral disc degeneration [Recovered/Resolved]
  - Paraesthesia [Recovered/Resolved]
